FAERS Safety Report 25720882 (Version 1)
Quarter: 2025Q3

REPORT INFORMATION
  Report Type: Spontaneous
  Country: EU (occurrence: EU)
  Receive Date: 20250825
  Receipt Date: 20250825
  Transmission Date: 20251021
  Serious: Yes (Life-Threatening, Hospitalization, Congenital Anomaly, Other)
  Sender: AUROBINDO
  Company Number: EU-LRB-01079092

PATIENT
  Age: 1 Hour
  Sex: Female
  Weight: 2.8 kg

DRUGS (1)
  1. SERTRALINE [Suspect]
     Active Substance: SERTRALINE HYDROCHLORIDE
     Indication: Panic disorder
     Dosage: MATERNAAL GEBRUIK VAN 1 X DAAGS 1 TABLET (MATERNAL AGE OF 1 X DAAGS 1 TABLET)
     Route: 064
     Dates: start: 20240401

REACTIONS (5)
  - Newborn persistent pulmonary hypertension [Recovering/Resolving]
  - Polycythaemia [Recovering/Resolving]
  - Small for dates baby [Recovering/Resolving]
  - Heart rate irregular [Recovering/Resolving]
  - Maternal exposure during pregnancy [Unknown]
